FAERS Safety Report 7762458-X (Version None)
Quarter: 2011Q3

REPORT INFORMATION
  Report Type: 
  Country: None (occurrence: None)
  Receive Date: 20110920
  Receipt Date: 20110803
  Transmission Date: 20111222
  Serious: No
  Sender: FDA-Public Use
  Company Number: US-MYLANLABS-2011S1016140

PATIENT
  Age: 39 Year
  Sex: Female

DRUGS (2)
  1. RISPERIDONE [Suspect]
     Indication: BIPOLAR I DISORDER
     Route: 048
     Dates: start: 20110801, end: 20110801
  2. PAROXETINE [Concomitant]

REACTIONS (14)
  - FEELING HOT [None]
  - AGITATION [None]
  - CHILLS [None]
  - DYSKINESIA [None]
  - PARANOIA [None]
  - COUGH [None]
  - DRY MOUTH [None]
  - GAIT DISTURBANCE [None]
  - MOOD SWINGS [None]
  - DIZZINESS [None]
  - MUSCLE TWITCHING [None]
  - PARAESTHESIA [None]
  - DYSPHONIA [None]
  - HEART RATE INCREASED [None]
